FAERS Safety Report 25440297 (Version 1)
Quarter: 2025Q2

REPORT INFORMATION
  Report Type: Spontaneous
  Country: AU (occurrence: None)
  Receive Date: 20250615
  Receipt Date: 20250615
  Transmission Date: 20250716
  Serious: Yes (Disabling)
  Sender: FDA-CTU
  Company Number: None

PATIENT
  Age: 60 Year
  Sex: Female
  Weight: 72 kg

DRUGS (1)
  1. PAROXETINE [Suspect]
     Active Substance: PAROXETINE
     Indication: Anxiety
     Dosage: 1 TABLET DAILY ORAL
     Route: 048
     Dates: start: 20001101, end: 20230730

REACTIONS (27)
  - Drug intolerance [None]
  - Visual impairment [None]
  - Intraocular pressure increased [None]
  - Withdrawal syndrome [None]
  - Electric shock sensation [None]
  - Hyperacusis [None]
  - Photophobia [None]
  - Mood altered [None]
  - Trismus [None]
  - Memory impairment [None]
  - Fatigue [None]
  - Anhedonia [None]
  - Depression [None]
  - Palpitations [None]
  - Intrusive thoughts [None]
  - Emotional disorder [None]
  - Dysphagia [None]
  - Influenza like illness [None]
  - Balance disorder [None]
  - Bladder spasm [None]
  - Head discomfort [None]
  - Insomnia [None]
  - Anxiety [None]
  - Derealisation [None]
  - Bruxism [None]
  - Myalgia [None]
  - Ligament pain [None]

NARRATIVE: CASE EVENT DATE: 20230811
